FAERS Safety Report 21916003 (Version 1)
Quarter: 2023Q1

REPORT INFORMATION
  Report Type: Spontaneous
  Country: US (occurrence: None)
  Receive Date: 20230125
  Receipt Date: 20230125
  Transmission Date: 20230418
  Serious: Yes (Other)
  Sender: FDA-Public Use
  Company Number: None

PATIENT
  Age: 24 Year
  Sex: Female
  Weight: 121.5 kg

DRUGS (1)
  1. TRULICITY [Suspect]
     Active Substance: DULAGLUTIDE
     Indication: Weight decreased
     Dosage: OTHER QUANTITY : 4 INJECTION(S);?OTHER FREQUENCY : ONCE A WEEK;?OTHER ROUTE : INJECTED INTO FAT OF S
     Route: 050
     Dates: start: 20230119, end: 20230119

REACTIONS (5)
  - Nausea [None]
  - Abdominal pain upper [None]
  - Diarrhoea [None]
  - Abdominal pain upper [None]
  - Haematemesis [None]

NARRATIVE: CASE EVENT DATE: 20230124
